FAERS Safety Report 11141290 (Version 1)
Quarter: 2015Q2

REPORT INFORMATION
  Report Type: Spontaneous
  Country: US (occurrence: None)
  Receive Date: 20150526
  Receipt Date: 20150526
  Transmission Date: 20150821
  Serious: Yes (Life-Threatening, Other)
  Sender: FDA-Public Use
  Company Number: None

PATIENT
  Age: 43 Year
  Sex: Female
  Weight: 85.28 kg

DRUGS (3)
  1. BUPROPION [Suspect]
     Active Substance: BUPROPION
     Indication: FATIGUE
     Dosage: 1 PILL ONCE DAILY TAKEN BY MOUTH
     Route: 048
     Dates: start: 20150518, end: 20150522
  2. BUPROPION [Suspect]
     Active Substance: BUPROPION
     Indication: PAIN
     Dosage: 1 PILL ONCE DAILY TAKEN BY MOUTH
     Route: 048
     Dates: start: 20150518, end: 20150522
  3. BUPROPION [Suspect]
     Active Substance: BUPROPION
     Indication: WEIGHT
     Dosage: 1 PILL ONCE DAILY TAKEN BY MOUTH
     Route: 048
     Dates: start: 20150518, end: 20150522

REACTIONS (7)
  - Product substitution issue [None]
  - Rheumatoid arthritis [None]
  - Fear of death [None]
  - Fibromyalgia [None]
  - Dyspnoea [None]
  - Product quality issue [None]
  - Disease recurrence [None]

NARRATIVE: CASE EVENT DATE: 20150522
